FAERS Safety Report 20872607 (Version 2)
Quarter: 2022Q2

REPORT INFORMATION
  Report Type: Spontaneous
  Country: US (occurrence: US)
  Receive Date: 20220525
  Receipt Date: 20220624
  Transmission Date: 20220721
  Serious: No
  Sender: FDA-Public Use
  Company Number: US-BRISTOL-MYERS SQUIBB COMPANY-2022-030429

PATIENT
  Age: 74 Year
  Sex: Male
  Weight: 89.81 kg

DRUGS (2)
  1. REVLIMID [Suspect]
     Active Substance: LENALIDOMIDE
     Indication: Product used for unknown indication
  2. POMALYST [Suspect]
     Active Substance: POMALIDOMIDE
     Indication: Plasma cell myeloma
     Route: 048
     Dates: start: 20211101

REACTIONS (9)
  - Hypoaesthesia [Unknown]
  - Diarrhoea [Unknown]
  - Dyspnoea [Unknown]
  - Abdominal discomfort [Unknown]
  - Paraesthesia [Unknown]
  - Dizziness [Unknown]
  - Abdominal discomfort [Unknown]
  - Memory impairment [Unknown]
  - Paraesthesia [Unknown]
